FAERS Safety Report 10429005 (Version 3)
Quarter: 2014Q3

REPORT INFORMATION
  Report Type: Report from Study
  Country: US (occurrence: US)
  Receive Date: 20140904
  Receipt Date: 20140929
  Transmission Date: 20150326
  Serious: Yes (Hospitalization)
  Sender: FDA-Public Use
  Company Number: US-BIOGENIDEC-2014BI089085

PATIENT
  Age: 63 Year
  Sex: Female

DRUGS (2)
  1. AVONEX [Suspect]
     Active Substance: INTERFERON BETA-1A
     Indication: MULTIPLE SCLEROSIS
     Route: 030
  2. AVONEX [Suspect]
     Active Substance: INTERFERON BETA-1A
     Indication: MULTIPLE SCLEROSIS
     Route: 030
     Dates: start: 20140108, end: 20140716

REACTIONS (10)
  - Chills [Recovered/Resolved]
  - Speech disorder [Recovered/Resolved]
  - Multiple sclerosis [Recovered/Resolved]
  - Asthenia [Recovered/Resolved]
  - Blood potassium decreased [Not Recovered/Not Resolved]
  - Gait disturbance [Recovered/Resolved]
  - Fall [Recovered/Resolved]
  - Multiple sclerosis relapse [Recovered/Resolved]
  - Urinary tract infection [Not Recovered/Not Resolved]
  - General symptom [Recovered/Resolved]

NARRATIVE: CASE EVENT DATE: 201408
